FAERS Safety Report 16375832 (Version 8)
Quarter: 2021Q1

REPORT INFORMATION
  Report Type: Spontaneous
  Country: JP (occurrence: JP)
  Receive Date: 20190531
  Receipt Date: 20210223
  Transmission Date: 20210419
  Serious: Yes (Hospitalization, Other)
  Sender: FDA-Public Use
  Company Number: JP-AMGEN-JPNSP2018143592

PATIENT
  Age: 73 Year
  Sex: Female
  Weight: 38.7 kg

DRUGS (21)
  1. EPOETIN ALFA [Concomitant]
     Active Substance: ERYTHROPOIETIN
     Dosage: 4500 DF
     Route: 065
     Dates: start: 20180620, end: 20180903
  2. FOSRENOL [Concomitant]
     Active Substance: LANTHANUM CARBONATE
     Dosage: 2250 MG
     Route: 048
  3. OXAROL [Concomitant]
     Active Substance: MAXACALCITOL
     Dosage: 10 UG, Q84H
     Route: 042
     Dates: start: 20190807, end: 20190902
  4. EPOETIN ALFA [Concomitant]
     Active Substance: ERYTHROPOIETIN
     Dosage: 7500 DF
     Route: 065
     Dates: start: 20180905, end: 20190622
  5. KIKLIN [Concomitant]
     Active Substance: BIXALOMER
     Dosage: 1500 MILLIGRAM
     Route: 048
  6. OXAROL [Concomitant]
     Active Substance: MAXACALCITOL
     Dosage: 7.5 UG Q84H (2018/09/03?2018/10/01), 5 UG QW (2018/09/23?2018/10/01)
     Route: 042
     Dates: start: 20180903, end: 20181001
  7. OXAROL [Concomitant]
     Active Substance: MAXACALCITOL
     Dosage: 7.5 UG, Q56H
     Route: 042
     Dates: start: 20200122
  8. OXAROL [Concomitant]
     Active Substance: MAXACALCITOL
     Dosage: 7.5 UG, QW
     Route: 042
     Dates: start: 20190807, end: 20190902
  9. OXAROL [Concomitant]
     Active Substance: MAXACALCITOL
     Dosage: 10 UG, QW
     Route: 042
     Dates: start: 20190904, end: 20200120
  10. PARSABIV [Suspect]
     Active Substance: ETELCALCETIDE HYDROCHLORIDE
     Indication: HYPERPARATHYROIDISM SECONDARY
     Dosage: 5 MILLIGRAM, 3 TIMES/WK
     Route: 010
     Dates: start: 20180813, end: 20180828
  11. EPOETIN ALFA [Concomitant]
     Active Substance: ERYTHROPOIETIN
     Dosage: 6000 DF
     Route: 065
     Dates: start: 20200106
  12. OXAROL [Concomitant]
     Active Substance: MAXACALCITOL
     Dosage: 15 MICROGRAM, 5 UG QW, Q2WK
     Route: 042
     Dates: end: 20180618
  13. OXAROL [Concomitant]
     Active Substance: MAXACALCITOL
     Dosage: 5 MICROGRAM, QWK
     Route: 042
     Dates: start: 20180923, end: 20181001
  14. OXAROL [Concomitant]
     Active Substance: MAXACALCITOL
     Dosage: 7.5 MICROGRAM, 3 TIMES/WK (7.5 UG, Q56H)
     Route: 042
     Dates: start: 20181003, end: 20181203
  15. OXAROL [Concomitant]
     Active Substance: MAXACALCITOL
     Dosage: 10 MICROGRAM, 2 TIMES/WK (10 UG, Q84H)
     Route: 042
     Dates: start: 20181205, end: 20190204
  16. OXAROL [Concomitant]
     Active Substance: MAXACALCITOL
     Dosage: 10 MICROGRAM, 3 TIMES/WK (10 UG, Q56H)
     Route: 042
     Dates: start: 20190206, end: 20190805
  17. EPOETIN ALFA [Concomitant]
     Active Substance: ERYTHROPOIETIN
     Dosage: 3750 DF
     Route: 065
     Dates: end: 20180619
  18. EPOETIN ALFA [Concomitant]
     Active Substance: ERYTHROPOIETIN
     Dosage: 7500 DF
     Route: 065
     Dates: start: 20190714, end: 20200103
  19. REGPARA [Concomitant]
     Active Substance: CINACALCET HYDROCHLORIDE
     Dosage: 12.5 MG, EVERYDAY(UNK?2018/08/12)
     Route: 048
     Dates: end: 20180812
  20. OXAROL [Concomitant]
     Active Substance: MAXACALCITOL
     Dosage: 7.5 UG, Q84H
     Route: 042
     Dates: start: 20190904, end: 20200120
  21. ORKEDIA [Concomitant]
     Active Substance: EVOCALCET
     Dosage: 1 MG, EVERYDAY
     Route: 048
     Dates: start: 20190221

REACTIONS (10)
  - Diverticulum intestinal haemorrhagic [Recovered/Resolved]
  - Chest discomfort [Unknown]
  - Shunt stenosis [Recovered/Resolved]
  - Diverticulitis [Recovering/Resolving]
  - Shunt stenosis [Recovered/Resolved]
  - Shunt stenosis [Recovered/Resolved]
  - Diarrhoea [Recovered/Resolved]
  - Shunt occlusion [Recovered/Resolved]
  - Shunt stenosis [Recovered/Resolved]
  - Shunt stenosis [Recovered/Resolved]

NARRATIVE: CASE EVENT DATE: 20180820
